FAERS Safety Report 6545931-1 (Version None)
Quarter: 2010Q1

REPORT INFORMATION
  Report Type: 
  Country: None (occurrence: None)
  Receive Date: 20100121
  Receipt Date: 20100121
  Transmission Date: 20100710
  Serious: Yes (Hospitalization, Other)
  Sender: FDA-Public Use
  Company Number: None

PATIENT
  Age: 42 Year
  Sex: Male
  Weight: 72.5755 kg

DRUGS (2)
  1. GENTAMICIN [Suspect]
     Indication: LOCALISED INFECTION
     Dosage: 350 MG/100CC NS ECLIPSE ONE TIME PER DAY IV DRIP
     Route: 041
     Dates: start: 20091222, end: 20100104
  2. GENTAMICIN [Suspect]
     Indication: OSTEOMYELITIS
     Dosage: 350 MG/100CC NS ECLIPSE ONE TIME PER DAY IV DRIP
     Route: 041
     Dates: start: 20091222, end: 20100104

REACTIONS (9)
  - DEAFNESS UNILATERAL [None]
  - DEHYDRATION [None]
  - DIZZINESS [None]
  - DYSSTASIA [None]
  - EATING DISORDER [None]
  - GAIT DISTURBANCE [None]
  - HYPOACUSIS [None]
  - RENAL FAILURE ACUTE [None]
  - THERAPEUTIC AGENT TOXICITY [None]
